FAERS Safety Report 15979392 (Version 1)
Quarter: 2019Q1

REPORT INFORMATION
  Report Type: Spontaneous
  Country: US (occurrence: US)
  Receive Date: 20190217
  Receipt Date: 20190217
  Transmission Date: 20190418
  Serious: Yes (Other)
  Sender: FDA-Public Use
  Company Number: None

PATIENT
  Age: 58 Year
  Sex: Female
  Weight: 66.6 kg

DRUGS (1)
  1. PICATO [Suspect]
     Active Substance: INGENOL MEBUTATE
     Indication: SKIN CANCER
     Dosage: ?          QUANTITY:1 TUBE;?
     Route: 061
     Dates: start: 20190212, end: 20190213

REACTIONS (3)
  - Skin discomfort [None]
  - Pain [None]
  - Blister [None]

NARRATIVE: CASE EVENT DATE: 20190212
